FAERS Safety Report 4908633-0 (Version None)
Quarter: 2006Q1

REPORT INFORMATION
  Report Type: 
  Country: None (occurrence: None)
  Receive Date: 20060210
  Receipt Date: 20050922
  Transmission Date: 20060701
  Serious: Yes (Other)
  Sender: FDA-Public Use
  Company Number: US-GLAXOSMITHKLINE-A0575459A

PATIENT
  Age: 35 Year
  Sex: Male

DRUGS (5)
  1. PAXIL [Suspect]
  2. PAXIL [Suspect]
     Route: 048
  3. DEPAKOTE [Concomitant]
  4. PROTONIX [Concomitant]
  5. SERZONE [Concomitant]

REACTIONS (2)
  - INSOMNIA [None]
  - MANIA [None]
